FAERS Safety Report 10023106 (Version 3)
Quarter: 2014Q2

REPORT INFORMATION
  Report Type: Report from Study
  Country: LU (occurrence: LU)
  Receive Date: 20140320
  Receipt Date: 20140623
  Transmission Date: 20141212
  Serious: Yes (Hospitalization)
  Sender: FDA-Public Use
  Company Number: LU-US-EMD SERONO, INC.-7275995

PATIENT
  Age: 57 Year
  Sex: Male

DRUGS (4)
  1. REBIF [Suspect]
     Indication: MULTIPLE SCLEROSIS
     Dates: start: 20131003, end: 20140518
  2. REBIF [Suspect]
  3. REBIF [Suspect]
  4. APROVEL [Concomitant]
     Indication: HYPERTENSION

REACTIONS (2)
  - Viral infection [Unknown]
  - Diverticulitis [Unknown]
